FAERS Safety Report 9916608 (Version 1)
Quarter: 2014Q1

REPORT INFORMATION
  Report Type: Spontaneous
  Country: US (occurrence: US)
  Receive Date: 20140221
  Receipt Date: 20140221
  Transmission Date: 20141002
  Serious: Yes (Other)
  Sender: FDA-Public Use
  Company Number: US-INCYTE CORPORATION-2014IN000398

PATIENT
  Sex: Male

DRUGS (9)
  1. JAKAFI [Suspect]
     Indication: MYELOFIBROSIS
     Dosage: 20 MG, BID
     Route: 048
     Dates: start: 201311
  2. JAKAFI [Suspect]
     Dosage: 10 MG, BID
     Route: 048
  3. JAKAFI [Suspect]
     Dosage: 5 MG, BID
     Route: 048
  4. TORSEMIDE [Concomitant]
  5. ALLOPURINOL [Concomitant]
  6. CRESTOR [Concomitant]
  7. GABAPENTIN [Concomitant]
  8. COREG [Concomitant]
  9. JANUVIA [Concomitant]

REACTIONS (1)
  - Blood creatinine increased [Unknown]
